FAERS Safety Report 13569174 (Version 1)
Quarter: 2017Q2

REPORT INFORMATION
  Report Type: Spontaneous
  Country: GB (occurrence: GB)
  Receive Date: 20170522
  Receipt Date: 20170522
  Transmission Date: 20170830
  Serious: Yes (Hospitalization, Other)
  Sender: FDA-Public Use
  Company Number: GB-MYLANLABS-2017M1029922

PATIENT

DRUGS (17)
  1. DILTIAZEM. [Suspect]
     Active Substance: DILTIAZEM
     Indication: ESSENTIAL HYPERTENSION
     Dosage: 180 MG, QD
     Route: 048
     Dates: end: 20170506
  2. GENERICS UK GLICLAZIDE [Concomitant]
     Active Substance: GLICLAZIDE
  3. TIMOLOL. [Concomitant]
     Active Substance: TIMOLOL
  4. ATORVASTATIN [Concomitant]
     Active Substance: ATORVASTATIN
  5. HUMULIN L [Concomitant]
     Active Substance: INSULIN HUMAN
     Dosage: HAD ONLY JUST STARTED - HAD TAKEN THREE DOSES.
  6. BIMATOPROST. [Concomitant]
     Active Substance: BIMATOPROST
  7. FERROUS SULFATE DRIED [Concomitant]
  8. LEVOTHYROXINE. [Concomitant]
     Active Substance: LEVOTHYROXINE
  9. QUININE [Concomitant]
     Active Substance: QUININE
     Dosage: UNK
  10. ASCORBIC ACID. [Concomitant]
     Active Substance: ASCORBIC ACID
  11. CETIRIZINE [Concomitant]
     Active Substance: CETIRIZINE HYDROCHLORIDE
  12. HYDROCORTISONE. [Concomitant]
     Active Substance: HYDROCORTISONE
  13. BISOPROLOL [Concomitant]
     Active Substance: BISOPROLOL
  14. VALSARTAN. [Concomitant]
     Active Substance: VALSARTAN
  15. CLARITHROMYCIN. [Suspect]
     Active Substance: CLARITHROMYCIN
     Indication: FURUNCLE
     Dosage: 500 MG, BID
     Route: 048
     Dates: start: 20170501, end: 20170506
  16. LANSOPRAZOLE. [Concomitant]
     Active Substance: LANSOPRAZOLE
  17. SITAGLIPTIN [Concomitant]
     Active Substance: SITAGLIPTIN

REACTIONS (7)
  - Circulatory collapse [Unknown]
  - Bradycardia [Recovering/Resolving]
  - Blood glucose increased [Unknown]
  - Hyperkalaemia [Unknown]
  - Malaise [Unknown]
  - Blood sodium decreased [Unknown]
  - Hypotension [Recovering/Resolving]
